FAERS Safety Report 7408928-5 (Version None)
Quarter: 2011Q2

REPORT INFORMATION
  Report Type: 
  Country: None (occurrence: None)
  Receive Date: 20110412
  Receipt Date: 20110405
  Transmission Date: 20111010
  Serious: Yes (Hospitalization)
  Sender: FDA-Public Use
  Company Number: AU-AMGEN-AUSSP2010007696

PATIENT
  Age: 79 Year
  Sex: Female
  Weight: 47 kg

DRUGS (4)
  1. VINBLASTINE [Concomitant]
     Dosage: 6 MG, UNK
     Dates: start: 20101126
  2. ETOPOPHOS PRESERVATIVE FREE [Concomitant]
     Dosage: 113.6 MG, UNK
     Dates: start: 20101126
  3. NEULASTA [Suspect]
     Indication: CHEMOTHERAPY
     Dosage: 6 MG, ONE TIME DOSE
     Route: 058
     Dates: start: 20101127, end: 20101127
  4. MITOZANTRONE [Concomitant]
     Dosage: 10 MG, UNK
     Dates: start: 20101126

REACTIONS (1)
  - NEUTROPENIC SEPSIS [None]
